FAERS Safety Report 24763885 (Version 1)
Quarter: 2024Q4

REPORT INFORMATION
  Report Type: Spontaneous
  Country: US (occurrence: US)
  Receive Date: 20241223
  Receipt Date: 20241223
  Transmission Date: 20250115
  Serious: No
  Sender: BRISTOL-MYERS SQUIBB COMPANY
  Company Number: US-BRISTOL-MYERS SQUIBB COMPANY-2024-194728

PATIENT
  Age: 66 Year
  Sex: Male
  Weight: 97.52 kg

DRUGS (1)
  1. THALOMID [Suspect]
     Active Substance: THALIDOMIDE
     Indication: Gastrointestinal arteriovenous malformation
     Dosage: FREQUENCY: 56/28 CYCLE
     Route: 048
     Dates: start: 20241214

REACTIONS (1)
  - Off label use [Unknown]
